FAERS Safety Report 6681658-3 (Version None)
Quarter: 2010Q2

REPORT INFORMATION
  Report Type: 
  Country: None (occurrence: None)
  Receive Date: 20100414
  Receipt Date: 20100409
  Transmission Date: 20101027
  Serious: Yes (Death)
  Sender: FDA-Public Use
  Company Number: US-WYE-H14536310

PATIENT
  Sex: Female
  Weight: 47.67 kg

DRUGS (1)
  1. PRISTIQ [Suspect]
     Indication: BIPOLAR I DISORDER
     Dosage: UNKNOWN
     Dates: start: 20100204

REACTIONS (2)
  - ASPHYXIA [None]
  - COMPLETED SUICIDE [None]
